FAERS Safety Report 7617262-X (Version None)
Quarter: 2011Q3

REPORT INFORMATION
  Report Type: 
  Country: None (occurrence: None)
  Receive Date: 20110718
  Receipt Date: 20110707
  Transmission Date: 20111222
  Serious: Yes (Other)
  Sender: FDA-Public Use
  Company Number: JP-JNJFOC-20110704463

PATIENT
  Sex: Male

DRUGS (4)
  1. HALOPERIDOL [Suspect]
     Route: 030
  2. HALOPERIDOL [Suspect]
     Indication: HUNTINGTON'S DISEASE
     Route: 048
  3. DORIPENEM MONOHYDRATE [Suspect]
     Route: 041
  4. DORIPENEM MONOHYDRATE [Suspect]
     Indication: PNEUMONIA ASPIRATION
     Route: 041
     Dates: start: 20110630, end: 20110630

REACTIONS (1)
  - CONVULSION [None]
